FAERS Safety Report 20601069 (Version 1)
Quarter: 2022Q1

REPORT INFORMATION
  Report Type: Spontaneous
  Country: US (occurrence: None)
  Receive Date: 20220316
  Receipt Date: 20220316
  Transmission Date: 20220424
  Serious: Yes (Other)
  Sender: FDA-Public Use
  Company Number: US-ROCHE-3048419

PATIENT
  Age: 79 Year
  Sex: Female
  Weight: 47.670 kg

DRUGS (1)
  1. RITUXAN [Suspect]
     Active Substance: RITUXIMAB
     Indication: Rheumatoid arthritis
     Dosage: LAST DOSE ON JUN/2020
     Route: 041

REACTIONS (1)
  - Neuroendocrine carcinoma of the skin [Recovered/Resolved]

NARRATIVE: CASE EVENT DATE: 20211001
